FAERS Safety Report 7534778-5 (Version None)
Quarter: 2011Q2

REPORT INFORMATION
  Report Type: 
  Country: None (occurrence: None)
  Receive Date: 20110609
  Receipt Date: 20080811
  Transmission Date: 20111010
  Serious: Yes (Death)
  Sender: FDA-Public Use
  Company Number: PHHY2008CA13429

PATIENT
  Sex: Female

DRUGS (7)
  1. CLOZAPINE [Suspect]
     Dosage: 400 MG, QHS
  2. LOXAPINE HCL [Concomitant]
     Dosage: 25 MG, UNK
  3. GABAPENTIN [Concomitant]
     Dosage: 900 MG, TID
  4. KEMADRIN [Concomitant]
     Dosage: 5 MG, BID
  5. CLOZAPINE [Suspect]
     Indication: SCHIZOPHRENIA
     Dosage: 300 MG, UNK
     Route: 048
     Dates: start: 20070907, end: 20080704
  6. LOXAPINE HCL [Concomitant]
     Dosage: 50 MG, BID
  7. ATIVAN [Concomitant]
     Dosage: 2 MG, BID
     Route: 048

REACTIONS (1)
  - DEATH [None]
